FAERS Safety Report 11630711 (Version 1)
Quarter: 2015Q4

REPORT INFORMATION
  Report Type: Report from Study
  Country: DE (occurrence: DE)
  Receive Date: 20151014
  Receipt Date: 20151014
  Transmission Date: 20160304
  Serious: Yes (Hospitalization)
  Sender: FDA-Public Use
  Company Number: DE-BAXALTA-2015BAX015657

PATIENT
  Age: 6 Year
  Sex: Male
  Weight: 18.6 kg

DRUGS (17)
  1. PIRITRAMIDA [Concomitant]
     Indication: ANAESTHESIA PROCEDURE
     Dosage: 2 MG, AS NEEDED
     Route: 042
     Dates: start: 20150319, end: 20150319
  2. ATRACURIUM [Concomitant]
     Active Substance: ATRACURIUM
     Indication: ANAESTHESIA PROCEDURE
     Dosage: 10 MG, AS NEEDED
     Route: 042
     Dates: start: 20150311, end: 20150311
  3. PIRITRAMIDA [Concomitant]
     Indication: ANAESTHESIA PROCEDURE
     Dosage: 2 MG, AS NEEDED
     Route: 042
     Dates: start: 20150311, end: 20150311
  4. SUFENTANIL [Concomitant]
     Active Substance: SUFENTANIL
     Indication: ANAESTHESIA PROCEDURE
     Dosage: 5 MG, AS NEEDED
     Route: 042
     Dates: start: 20150311, end: 20150311
  5. MIDAZOLAM [Concomitant]
     Active Substance: MIDAZOLAM\MIDAZOLAM HYDROCHLORIDE
     Indication: ANAESTHESIA PROCEDURE
     Dosage: 10 MG, 1X A DAY
     Route: 042
     Dates: start: 20150311, end: 20150311
  6. PROPOFOL. [Concomitant]
     Active Substance: PROPOFOL
     Indication: ANAESTHESIA PROCEDURE
     Dosage: 613 MG, AS NEEDED
     Route: 042
     Dates: start: 20150311, end: 20150311
  7. SUFENTANIL [Concomitant]
     Active Substance: SUFENTANIL
     Indication: ANAESTHESIA PROCEDURE
     Dosage: 8 MG, AS NEEDED
     Route: 042
     Dates: start: 20150319, end: 20150319
  8. ADVATE [Suspect]
     Active Substance: ANTIHEMOPHILIC FACTOR, HUMAN RECOMBINANT
     Indication: HAEMORRHAGE PROPHYLAXIS
     Dosage: 1000 IU, 2X A DAY
     Route: 042
     Dates: start: 20150315, end: 20150315
  9. MIDAZOLAM [Concomitant]
     Active Substance: MIDAZOLAM\MIDAZOLAM HYDROCHLORIDE
     Indication: ANAESTHESIA PROCEDURE
     Dosage: 9 MG, AS NEEDED
     Route: 048
     Dates: start: 20150319, end: 20150319
  10. CLYSTER [Concomitant]
     Indication: CONSTIPATION
     Dosage: 60 ML, AS NEEDED
     Route: 054
     Dates: start: 20150314, end: 20150314
  11. ADVATE [Suspect]
     Active Substance: ANTIHEMOPHILIC FACTOR, HUMAN RECOMBINANT
     Indication: FACTOR VIII DEFICIENCY
  12. CEFUROXIM [Concomitant]
     Active Substance: CEFUROXIME
     Indication: INFECTION PROPHYLAXIS
     Dosage: 600 MG, 3X A DAY
     Route: 042
     Dates: start: 20150312, end: 20150321
  13. TRANEXAMIC ACID. [Concomitant]
     Active Substance: TRANEXAMIC ACID
     Indication: PROCOAGULANT THERAPY
     Dosage: 500 MG, 3X A DAY
     Route: 042
     Dates: start: 20150311, end: 20150323
  14. ATROPIN [Concomitant]
     Active Substance: ATROPINE
     Indication: ANAESTHESIA PROCEDURE
     Dosage: 0.2 MG, AS NEEDED
     Route: 042
     Dates: start: 20150311, end: 20150311
  15. ATROPIN [Concomitant]
     Active Substance: ATROPINE
     Indication: ANAESTHESIA PROCEDURE
     Dosage: 0.15 MG, AS NEEDED
     Route: 042
     Dates: start: 20150319, end: 20150319
  16. METAMIZOLE [Concomitant]
     Active Substance: METAMIZOLE
     Indication: PROCEDURAL PAIN
     Dosage: 300 MG, AS NEEDED
     Route: 042
     Dates: start: 20150311, end: 20150311
  17. PROPOFOL. [Concomitant]
     Active Substance: PROPOFOL
     Indication: ANAESTHESIA PROCEDURE
     Dosage: 385 MG, AS NEEDED
     Route: 042
     Dates: start: 20150319, end: 20150319

REACTIONS (1)
  - Extravasation [Recovered/Resolved]

NARRATIVE: CASE EVENT DATE: 20150316
